FAERS Safety Report 25344685 (Version 4)
Quarter: 2025Q2

REPORT INFORMATION
  Report Type: Report from Study
  Country: US (occurrence: US)
  Receive Date: 20250522
  Receipt Date: 20250612
  Transmission Date: 20250716
  Serious: Yes (Other)
  Sender: UNITED THERAPEUTICS
  Company Number: US-UNITED THERAPEUTICS-UNT-2025-006339

PATIENT
  Sex: Male
  Weight: 58.957 kg

DRUGS (18)
  1. TREPROSTINIL SODIUM [Suspect]
     Active Substance: TREPROSTINIL SODIUM
     Indication: Pulmonary fibrosis
     Dosage: 72 ?G, QID
  2. TREPROSTINIL SODIUM [Suspect]
     Active Substance: TREPROSTINIL SODIUM
     Indication: Pulmonary arterial hypertension
     Dosage: 24 ?G, QID
  3. TREPROSTINIL SODIUM [Suspect]
     Active Substance: TREPROSTINIL SODIUM
  4. TREPROSTINIL SODIUM [Suspect]
     Active Substance: TREPROSTINIL SODIUM
  5. TREPROSTINIL SODIUM [Suspect]
     Active Substance: TREPROSTINIL SODIUM
  6. MORPHINE [Concomitant]
     Active Substance: MORPHINE
     Indication: Pain
     Dosage: 5 MG, Q2H
     Dates: start: 20250106
  7. MORPHINE [Concomitant]
     Active Substance: MORPHINE
     Indication: Dyspnoea
  8. PIRFENIDONE [Concomitant]
     Active Substance: PIRFENIDONE
     Indication: Pulmonary fibrosis
     Dosage: 801 MG, TID
     Dates: start: 20250106
  9. LORAZEPAM [Concomitant]
     Active Substance: LORAZEPAM
     Indication: Anxiety
     Dosage: 0.5 MG, Q4H
     Dates: start: 20250106
  10. LORAZEPAM [Concomitant]
     Active Substance: LORAZEPAM
     Indication: Nausea
  11. MIRTAZAPINE [Concomitant]
     Active Substance: MIRTAZAPINE
     Indication: Weight increased
     Dosage: 15 MG, QD
     Dates: start: 20250106
  12. BISACODYL [Concomitant]
     Active Substance: BISACODYL
     Indication: Constipation
     Dosage: 10 MG, QD
     Dates: start: 20250106
  13. VITAMINS [Concomitant]
     Active Substance: VITAMINS
     Indication: Product used for unknown indication
     Dosage: UNK, BID
     Dates: start: 20250127
  14. OXYGEN [Concomitant]
     Active Substance: OXYGEN
     Indication: Dyspnoea
  15. OXYGEN [Concomitant]
     Active Substance: OXYGEN
  16. OXYGEN [Concomitant]
     Active Substance: OXYGEN
  17. OXYGEN [Concomitant]
     Active Substance: OXYGEN
  18. SENNA LAXATIVE [Concomitant]
     Active Substance: SENNOSIDES
     Indication: Constipation

REACTIONS (6)
  - Drug dependence [Not Recovered/Not Resolved]
  - Pulmonary fibrosis [Not Recovered/Not Resolved]
  - Condition aggravated [Not Recovered/Not Resolved]
  - Bedridden [Not Recovered/Not Resolved]
  - Insurance issue [Unknown]
  - Off label use [Unknown]

NARRATIVE: CASE EVENT DATE: 20210101
